FAERS Safety Report 5067771-5 (Version None)
Quarter: 2006Q3

REPORT INFORMATION
  Report Type: 
  Country: None (occurrence: None)
  Receive Date: 20060802
  Receipt Date: 20060608
  Transmission Date: 20061208
  Serious: Yes (Other)
  Sender: FDA-Public Use
  Company Number: US-GLAXOSMITHKLINE-A0608400A

PATIENT
  Age: 58 Year
  Sex: Female
  Weight: 59.1 kg

DRUGS (1)
  1. VALTREX [Suspect]
     Indication: HERPES SIMPLEX
     Dosage: 500MG PER DAY
     Route: 048
     Dates: start: 20050901

REACTIONS (2)
  - CATARACT [None]
  - VISION BLURRED [None]
